FAERS Safety Report 9205158 (Version 1)
Quarter: 2013Q2

REPORT INFORMATION
  Report Type: Spontaneous
  Country: NO (occurrence: NO)
  Receive Date: 20130402
  Receipt Date: 20130402
  Transmission Date: 20140414
  Serious: Yes (Death, Hospitalization)
  Sender: FDA-Public Use
  Company Number: NO-BAXTER-2013BAX011445

PATIENT
  Age: 73 Year
  Sex: Female

DRUGS (5)
  1. SENDOXAN 1000 MG PULVER TIL INJEKSJONSV?SKE, OPPL?SNING [Suspect]
     Indication: CHRONIC LYMPHOCYTIC LEUKAEMIA
     Dosage: 4 COURSES GIVEN
     Route: 051
     Dates: start: 201210, end: 20130107
  2. RITUXIMAB [Suspect]
     Indication: CHRONIC LYMPHOCYTIC LEUKAEMIA
     Dosage: 4 COURSES GIVEN
     Route: 051
     Dates: start: 201210, end: 20130107
  3. FLUDARABINE [Suspect]
     Indication: CHRONIC LYMPHOCYTIC LEUKAEMIA
     Dosage: 4 COURSES GIVEN
     Route: 051
     Dates: start: 201210, end: 20130107
  4. PREDNISOLON [Concomitant]
     Indication: CHRONIC LYMPHOCYTIC LEUKAEMIA
     Route: 065
     Dates: start: 2012
  5. LEUKERAN [Concomitant]
     Indication: CHRONIC LYMPHOCYTIC LEUKAEMIA
     Route: 065
     Dates: start: 201204, end: 201206

REACTIONS (4)
  - Thrombocytopenia [Not Recovered/Not Resolved]
  - Haemolysis [Not Recovered/Not Resolved]
  - Subdural haemorrhage [Fatal]
  - Brain herniation [Fatal]
